FAERS Safety Report 7386833-0 (Version None)
Quarter: 2011Q1

REPORT INFORMATION
  Report Type: 
  Country: None (occurrence: None)
  Receive Date: 20110331
  Receipt Date: 20110325
  Transmission Date: 20110831
  Serious: Yes (Hospitalization, Other)
  Sender: FDA-Public Use
  Company Number: US-PFIZER INC-2011067265

PATIENT
  Sex: Female
  Weight: 74.8 kg

DRUGS (6)
  1. TRAVATAN [Concomitant]
     Indication: GLAUCOMA
     Dosage: UNK
  2. PROTONIX [Concomitant]
     Indication: GASTRIC DISORDER
     Dosage: UNK
  3. LIPITOR [Suspect]
     Indication: BLOOD CHOLESTEROL INCREASED
     Dosage: 20 MG, UNK
     Route: 048
     Dates: end: 20110301
  4. CYMBALTA [Concomitant]
     Dosage: 20 MG, UNK
  5. KLONOPIN [Concomitant]
     Dosage: 1 MG, 1X/DAY, AT BEDTIME
  6. LIBRIUM [Concomitant]
     Dosage: 500 MG, 2X/DAY

REACTIONS (4)
  - BLOOD TRIGLYCERIDES INCREASED [None]
  - ARTHRALGIA [None]
  - PAIN [None]
  - PANCREATITIS [None]
